FAERS Safety Report 7037940-3 (Version None)
Quarter: 2010Q4

REPORT INFORMATION
  Report Type: 
  Country: None (occurrence: None)
  Receive Date: 20101011
  Receipt Date: 20101001
  Transmission Date: 20110411
  Serious: Yes (Other)
  Sender: FDA-Public Use
  Company Number: US-AMGEN-KDL443601

PATIENT
  Sex: Female
  Weight: 84.9 kg

DRUGS (9)
  1. PROCRIT [Suspect]
     Indication: PRODUCT USED FOR UNKNOWN INDICATION
     Route: 058
     Dates: start: 20060101, end: 20060101
  2. PROCRIT [Suspect]
     Route: 058
     Dates: start: 20060101, end: 20060101
  3. IRON [Concomitant]
  4. INSULIN [Concomitant]
  5. GABAPENTIN [Concomitant]
  6. ENALAPRIL MALEATE [Concomitant]
  7. LASIX [Concomitant]
  8. ASPIRIN [Concomitant]
  9. NORVASC [Concomitant]

REACTIONS (1)
  - RENAL IMPAIRMENT [None]
